FAERS Safety Report 7178286-2 (Version None)
Quarter: 2010Q4

REPORT INFORMATION
  Report Type: 
  Country: None (occurrence: None)
  Receive Date: 20101220
  Receipt Date: 20101216
  Transmission Date: 20110411
  Serious: Yes (Other)
  Sender: FDA-Public Use
  Company Number: GR-PFIZER INC-2010174414

PATIENT
  Age: 59 Year
  Sex: Male

DRUGS (8)
  1. DOXORUBICIN HCL [Suspect]
     Indication: MULTIPLE MYELOMA
  2. METHOTREXATE SODIUM [Suspect]
     Indication: MULTIPLE MYELOMA
  3. VINCRISTINE [Suspect]
     Indication: MULTIPLE MYELOMA
  4. DEXAMETHASONE [Suspect]
     Indication: MULTIPLE MYELOMA
  5. THALIDOMIDE [Suspect]
     Indication: MULTIPLE MYELOMA
  6. BORTEZOMIB [Suspect]
     Indication: MULTIPLE MYELOMA
  7. LENALIDOMIDE [Suspect]
     Indication: MULTIPLE MYELOMA
  8. RIBOMUSTIN [Suspect]
     Indication: MULTIPLE MYELOMA

REACTIONS (1)
  - NEUROPATHY PERIPHERAL [None]
